FAERS Safety Report 12070549 (Version 3)
Quarter: 2016Q2

REPORT INFORMATION
  Report Type: Report from Study
  Country: US (occurrence: US)
  Receive Date: 20160211
  Receipt Date: 20160411
  Transmission Date: 20160815
  Serious: Yes (Hospitalization)
  Sender: FDA-Public Use
  Company Number: US-ACTELION-A-US2016-129916

PATIENT
  Age: 42 Year
  Sex: Female

DRUGS (4)
  1. COUMADIN [Concomitant]
     Active Substance: WARFARIN SODIUM
  2. REMODULIN [Suspect]
     Active Substance: TREPROSTINIL
     Indication: PULMONARY ARTERIAL HYPERTENSION
     Dosage: 20 NG/KG, UNK
     Route: 058
     Dates: start: 20160307
  3. VELETRI [Suspect]
     Active Substance: EPOPROSTENOL
     Indication: PULMONARY ARTERIAL HYPERTENSION
     Dosage: 22.5 NG/KG, PER MIN
     Route: 042
     Dates: start: 20141105, end: 20160309
  4. ADCIRCA [Concomitant]
     Active Substance: TADALAFIL

REACTIONS (6)
  - Skin infection [Unknown]
  - Device related infection [Unknown]
  - Catheter site pain [Unknown]
  - Central venous catheter removal [Unknown]
  - Complication associated with device [Unknown]
  - Pain in extremity [Unknown]
